FAERS Safety Report 4377393-7 (Version None)
Quarter: 2004Q2

REPORT INFORMATION
  Report Type: 
  Country: None (occurrence: None)
  Receive Date: 20040615
  Receipt Date: 20040603
  Transmission Date: 20050107
  Serious: Yes (Death, Hospitalization)
  Sender: FDA-Public Use
  Company Number: JP-BRISTOL-MYERS SQUIBB COMPANY-12609913

PATIENT
  Age: 6 Year
  Sex: Male

DRUGS (8)
  1. IFOMIDE [Suspect]
     Indication: LUNG NEOPLASM
     Dosage: 2 CYCLES
     Route: 041
     Dates: start: 20031110, end: 20040101
  2. LASTET [Suspect]
     Indication: LUNG NEOPLASM
     Dosage: 2 CYCLES
     Route: 041
     Dates: start: 20031110, end: 20040101
  3. UROMITEXAN [Suspect]
     Indication: LUNG NEOPLASM
     Route: 042
     Dates: start: 20031229, end: 20040101
  4. PARAPLATIN [Suspect]
     Indication: LUNG NEOPLASM
     Dosage: 2 CYCLES
     Route: 041
     Dates: start: 20031110, end: 20031230
  5. PRIMAXIN [Concomitant]
     Dates: start: 20031214, end: 20040101
  6. DIFLUCAN [Concomitant]
     Dates: start: 20031207, end: 20040101
  7. KYTRIL [Concomitant]
     Dates: start: 20031229, end: 20040101
  8. FOSFOMYCIN [Concomitant]
     Dates: start: 20031229, end: 20040101

REACTIONS (5)
  - INFECTION [None]
  - MYOCARDITIS [None]
  - NAUSEA [None]
  - SOMNOLENCE [None]
  - VOMITING [None]
